FAERS Safety Report 5978585-3 (Version None)
Quarter: 2008Q4

REPORT INFORMATION
  Report Type: 
  Country: None (occurrence: None)
  Receive Date: 20081204
  Receipt Date: 20081201
  Transmission Date: 20090506
  Serious: Yes (Other)
  Sender: FDA-Public Use
  Company Number: B0529248A

PATIENT
  Age: 67 Year
  Sex: Male

DRUGS (6)
  1. OMACOR [Suspect]
     Dosage: 1000MG FOUR TIMES PER DAY
     Route: 048
     Dates: start: 20080503, end: 20080527
  2. ASPIRIN [Concomitant]
     Dosage: 100MG PER DAY
     Route: 065
     Dates: start: 19950101
  3. PLAVIX [Concomitant]
     Indication: STENT PLACEMENT
     Dosage: 75MG PER DAY
     Route: 065
     Dates: start: 20080503
  4. ENALAPRIL MALEATE [Concomitant]
     Indication: HYPERTENSION
     Dosage: 10MG PER DAY
     Route: 065
     Dates: start: 19950101
  5. METOPROLOL TARTRATE [Concomitant]
     Indication: HYPERTENSION
     Dosage: 50MG PER DAY
     Route: 065
     Dates: start: 19950101
  6. SIMVASTATIN [Concomitant]
     Dosage: 20MG PER DAY
     Route: 065
     Dates: start: 19950101

REACTIONS (2)
  - GAMMA-GLUTAMYLTRANSFERASE INCREASED [None]
  - OFF LABEL USE [None]
